FAERS Safety Report 23862529 (Version 12)
Quarter: 2025Q1

REPORT INFORMATION
  Report Type: Report from Study
  Country: CA (occurrence: CA)
  Receive Date: 20240516
  Receipt Date: 20250211
  Transmission Date: 20250408
  Serious: Yes (Hospitalization, Other)
  Sender: TAKEDA
  Company Number: CA-TAKEDA-CA202027986

PATIENT
  Sex: Female
  Weight: 99 kg

DRUGS (55)
  1. AGALSIDASE ALFA [Suspect]
     Active Substance: AGALSIDASE ALFA
     Indication: Fabry^s disease
  2. AGALSIDASE ALFA [Suspect]
     Active Substance: AGALSIDASE ALFA
  3. AGALSIDASE ALFA [Suspect]
     Active Substance: AGALSIDASE ALFA
     Dosage: 21.66 MILLIGRAM, Q2WEEKS
  4. AGALSIDASE ALFA [Suspect]
     Active Substance: AGALSIDASE ALFA
     Dosage: 21.66 MILLIGRAM, Q2WEEKS
  5. AGALSIDASE ALFA [Suspect]
     Active Substance: AGALSIDASE ALFA
  6. AGALSIDASE ALFA [Suspect]
     Active Substance: AGALSIDASE ALFA
  7. AGALSIDASE ALFA [Suspect]
     Active Substance: AGALSIDASE ALFA
  8. AGALSIDASE ALFA [Suspect]
     Active Substance: AGALSIDASE ALFA
  9. AGALSIDASE ALFA [Suspect]
     Active Substance: AGALSIDASE ALFA
  10. AGALSIDASE ALFA [Suspect]
     Active Substance: AGALSIDASE ALFA
     Dosage: 6 DOSAGE FORM, Q2WEEKS
  11. AGALSIDASE ALFA [Suspect]
     Active Substance: AGALSIDASE ALFA
     Dosage: 6 DOSAGE FORM, Q2WEEKS
  12. AGALSIDASE ALFA [Suspect]
     Active Substance: AGALSIDASE ALFA
     Dosage: 21.66 MILLIGRAM, Q2WEEKS
  13. AGALSIDASE ALFA [Suspect]
     Active Substance: AGALSIDASE ALFA
     Dosage: 21.66 MILLIGRAM, Q2WEEKS
  14. AGALSIDASE ALFA [Suspect]
     Active Substance: AGALSIDASE ALFA
     Dosage: 6 DOSAGE FORM, Q2WEEKS
  15. AGALSIDASE ALFA [Suspect]
     Active Substance: AGALSIDASE ALFA
     Dosage: 20.86 MILLIGRAM, 1/WEEK
  16. AGALSIDASE ALFA [Suspect]
     Active Substance: AGALSIDASE ALFA
     Dosage: 6 DOSAGE FORM, Q2WEEKS
  17. AGALSIDASE ALFA [Suspect]
     Active Substance: AGALSIDASE ALFA
     Dosage: 20.86 MILLIGRAM, Q2WEEKS
  18. AGALSIDASE ALFA [Suspect]
     Active Substance: AGALSIDASE ALFA
     Dosage: 6 DOSAGE FORM, 2/WEEK
  19. AGALSIDASE ALFA [Suspect]
     Active Substance: AGALSIDASE ALFA
     Dosage: 6 DOSAGE FORM, Q2WEEKS
  20. AGALSIDASE ALFA [Suspect]
     Active Substance: AGALSIDASE ALFA
     Dosage: 6 DOSAGE FORM, Q2WEEKS
  21. AGALSIDASE ALFA [Suspect]
     Active Substance: AGALSIDASE ALFA
     Dosage: 6 DOSAGE FORM, Q2WEEKS
  22. AGALSIDASE ALFA [Suspect]
     Active Substance: AGALSIDASE ALFA
     Dosage: 6 DOSAGE FORM, Q2WEEKS
  23. AGALSIDASE ALFA [Suspect]
     Active Substance: AGALSIDASE ALFA
     Dosage: 6 DOSAGE FORM, Q2WEEKS
  24. AGALSIDASE ALFA [Suspect]
     Active Substance: AGALSIDASE ALFA
     Dosage: UNK UNK, Q2WEEKS
  25. AGALSIDASE ALFA [Suspect]
     Active Substance: AGALSIDASE ALFA
     Dosage: 20.78 MILLIGRAM, Q2WEEKS
  26. AGALSIDASE ALFA [Suspect]
     Active Substance: AGALSIDASE ALFA
     Dosage: 20.78 MILLIGRAM, Q2WEEKS
  27. AGALSIDASE ALFA [Suspect]
     Active Substance: AGALSIDASE ALFA
     Dosage: UNK UNK, Q2WEEKS
  28. AGALSIDASE ALFA [Suspect]
     Active Substance: AGALSIDASE ALFA
     Dosage: 20.78 MILLIGRAM, Q2WEEKS
  29. AGALSIDASE ALFA [Suspect]
     Active Substance: AGALSIDASE ALFA
     Dosage: 20.78 MILLIGRAM, Q2WEEKS
  30. AGALSIDASE ALFA [Suspect]
     Active Substance: AGALSIDASE ALFA
     Dosage: UNK UNK, Q2WEEKS
  31. MESALAMINE [Suspect]
     Active Substance: MESALAMINE
     Indication: Product used for unknown indication
  32. RAMIPRIL [Suspect]
     Active Substance: RAMIPRIL
     Indication: Product used for unknown indication
     Dates: start: 20240504, end: 20240804
  33. ROSUVASTATIN [Suspect]
     Active Substance: ROSUVASTATIN
     Indication: Product used for unknown indication
     Dates: start: 20240504, end: 20240804
  34. COVID-19 VACCINE NOS [Suspect]
     Active Substance: COVID-19 VACCINE
     Indication: COVID-19 immunisation
  35. IMODIUM [Concomitant]
     Active Substance: LOPERAMIDE HYDROCHLORIDE
  36. TYLENOL [Concomitant]
     Active Substance: ACETAMINOPHEN
  37. LIOTHYRONINE SODIUM [Concomitant]
     Active Substance: LIOTHYRONINE SODIUM
  38. VITAMIN D NOS [Concomitant]
     Active Substance: CHOLECALCIFEROL\ERGOCALCIFEROL
  39. ZANTAC [Concomitant]
     Active Substance: RANITIDINE HYDROCHLORIDE
  40. MIRENA [Concomitant]
     Active Substance: LEVONORGESTREL
  41. SERTRALINE [Concomitant]
     Active Substance: SERTRALINE HYDROCHLORIDE
     Indication: Depression
  42. LIOTHYRONINE SODIUM [Concomitant]
     Active Substance: LIOTHYRONINE SODIUM
  43. DOXYLAMINE [Concomitant]
     Active Substance: DOXYLAMINE
  44. ASPIRIN [Concomitant]
     Active Substance: ASPIRIN
  45. DICLECTIN [Concomitant]
     Active Substance: DOXYLAMINE SUCCINATE\PYRIDOXINE HYDROCHLORIDE
  46. MG 2 PLUS [Concomitant]
  47. TUMS [Concomitant]
     Active Substance: CALCIUM CARBONATE
  48. CALCIUM\MAGNESIUM [Concomitant]
     Active Substance: CALCIUM\MAGNESIUM
  49. ERGOCALCIFEROL [Concomitant]
     Active Substance: ERGOCALCIFEROL
  50. MAGNESIUM PIDOLATE [Concomitant]
     Active Substance: MAGNESIUM PIDOLATE
  51. NEXPLANON [Concomitant]
     Active Substance: ETONOGESTREL
  52. B12 [Concomitant]
  53. ASPIRIN [Concomitant]
     Active Substance: ASPIRIN
  54. ALBUTEROL [Concomitant]
     Active Substance: ALBUTEROL
  55. GRAVOL [Concomitant]
     Active Substance: DIMENHYDRINATE

REACTIONS (52)
  - Haematochezia [Not Recovered/Not Resolved]
  - Fatigue [Recovered/Resolved]
  - Nausea [Recovered/Resolved]
  - Blood pressure decreased [Not Recovered/Not Resolved]
  - Heart rate increased [Not Recovered/Not Resolved]
  - Cholestasis of pregnancy [Not Recovered/Not Resolved]
  - Protein urine present [Not Recovered/Not Resolved]
  - Pre-eclampsia [Not Recovered/Not Resolved]
  - Hypoacusis [Not Recovered/Not Resolved]
  - Weight decreased [Not Recovered/Not Resolved]
  - Appetite disorder [Not Recovered/Not Resolved]
  - Body temperature increased [Not Recovered/Not Resolved]
  - Morning sickness [Not Recovered/Not Resolved]
  - Malaise [Not Recovered/Not Resolved]
  - Pruritus [Not Recovered/Not Resolved]
  - Muscle spasms [Recovered/Resolved]
  - Vomiting [Recovered/Resolved]
  - Product use issue [Unknown]
  - Inappropriate schedule of product administration [Recovering/Resolving]
  - Product dose omission issue [Not Recovered/Not Resolved]
  - Paraesthesia [Not Recovered/Not Resolved]
  - Headache [Not Recovered/Not Resolved]
  - Pain [Not Recovered/Not Resolved]
  - Skin discolouration [Unknown]
  - Weight increased [Unknown]
  - Blood pressure increased [Unknown]
  - Maternal exposure during breast feeding [Unknown]
  - Exposure during pregnancy [Recovered/Resolved]
  - Panic attack [Recovered/Resolved with Sequelae]
  - Anxiety [Recovered/Resolved with Sequelae]
  - Chest pain [Recovered/Resolved]
  - Chest discomfort [Recovered/Resolved with Sequelae]
  - COVID-19 [Recovered/Resolved]
  - Depressed mood [Recovering/Resolving]
  - Tearfulness [Unknown]
  - Mental disorder [Unknown]
  - Depression [Unknown]
  - Illness [Not Recovered/Not Resolved]
  - Hand-foot-and-mouth disease [Recovered/Resolved]
  - Oropharyngeal pain [Not Recovered/Not Resolved]
  - Nasal congestion [Not Recovered/Not Resolved]
  - Obstruction [Not Recovered/Not Resolved]
  - Throat irritation [Not Recovered/Not Resolved]
  - Brain fog [Not Recovered/Not Resolved]
  - Product dose omission in error [Recovered/Resolved]
  - Rhinorrhoea [Recovered/Resolved]
  - Cough [Recovered/Resolved]
  - Nasopharyngitis [Not Recovered/Not Resolved]
  - Pyrexia [Recovered/Resolved]
  - Pain in extremity [Recovered/Resolved]
  - Dizziness [Recovered/Resolved]
  - Hyperhidrosis [Recovered/Resolved]

NARRATIVE: CASE EVENT DATE: 20200101
